FAERS Safety Report 23077271 (Version 4)
Quarter: 2023Q4

REPORT INFORMATION
  Report Type: Spontaneous
  Country: US (occurrence: US)
  Receive Date: 20231018
  Receipt Date: 20231106
  Transmission Date: 20240109
  Serious: No
  Sender: FDA-Public Use
  Company Number: US-ABBVIE-5454596

PATIENT
  Sex: Male

DRUGS (2)
  1. LINZESS [Suspect]
     Active Substance: LINACLOTIDE
     Indication: Small fibre neuropathy
     Dosage: 145 MICROGRAMS
     Route: 048
  2. LINZESS [Suspect]
     Active Substance: LINACLOTIDE
     Indication: Small fibre neuropathy
     Dosage: 290 MICROGRAMS
     Route: 048
     Dates: start: 202310

REACTIONS (5)
  - Small fibre neuropathy [Unknown]
  - Therapeutic product effect incomplete [Unknown]
  - Gastrointestinal motility disorder [Unknown]
  - Drug ineffective [Unknown]
  - Drug ineffective [Unknown]
